FAERS Safety Report 10258344 (Version 1)
Quarter: 2014Q2

REPORT INFORMATION
  Report Type: Spontaneous
  Country: US (occurrence: None)
  Receive Date: 20140623
  Receipt Date: 20140623
  Transmission Date: 20141212
  Serious: Yes (Hospitalization)
  Sender: FDA-Public Use
  Company Number: None

PATIENT
  Sex: Female
  Weight: 104 kg

DRUGS (7)
  1. ROC RETINOL CORREXION DEEP WRINKLE NIGHT CREAM [Suspect]
     Indication: SKIN WRINKLING
     Dosage: DIME, 1XDAY, TOPICAL
     Route: 061
     Dates: start: 20140523, end: 20140530
  2. ROC RETINOL CORREXION DEEP WRINKLE SERUM [Suspect]
     Indication: SKIN WRINKLING
     Route: 061
     Dates: start: 20140523, end: 20140530
  3. ROC RETINOL CORREXION DEEP WRINKLE DAILY MOISTURIZER SPF30 [Suspect]
     Indication: SKIN WRINKLING
     Dosage: DIME SIZE, ONCE DAILY, TOPICAL
     Route: 061
     Dates: start: 20140523, end: 20140530
  4. ROC RETINOL CORREXION DEEP WRINKLE FILLER [Suspect]
     Indication: SKIN WRINKLING
     Dates: start: 20140523, end: 20140530
  5. LORAZEPAM [Concomitant]
  6. MEPROBAMATE [Concomitant]
  7. REQUIP [Concomitant]

REACTIONS (5)
  - Hypersensitivity [None]
  - Skin disorder [None]
  - Swollen tongue [None]
  - Dyspnoea [None]
  - Wheezing [None]
